FAERS Safety Report 4562584-2 (Version None)
Quarter: 2005Q1

REPORT INFORMATION
  Report Type: 
  Country: None (occurrence: None)
  Receive Date: 20050127
  Receipt Date: 20050116
  Transmission Date: 20050727
  Serious: Yes (Other)
  Sender: FDA-Public Use
  Company Number: US-ROCHE-392736

PATIENT
  Sex: Female

DRUGS (2)
  1. PEGASYS [Suspect]
     Indication: HEPATITIS C
     Dosage: WEEKLY DOSE.
     Route: 065
     Dates: start: 20041024
  2. COPEGUS [Suspect]
     Indication: HEPATITIS C
     Route: 048
     Dates: start: 20041024

REACTIONS (5)
  - ARTHRALGIA [None]
  - BACK PAIN [None]
  - BILIARY NEOPLASM [None]
  - CHEST WALL PAIN [None]
  - PAIN [None]
